FAERS Safety Report 4442644-7 (Version None)
Quarter: 2004Q3

REPORT INFORMATION
  Report Type: 
  Country: None (occurrence: None)
  Receive Date: 20040903
  Receipt Date: 20040607
  Transmission Date: 20050211
  Serious: Yes (Other)
  Sender: FDA-Public Use
  Company Number: 2004UW11757

PATIENT
  Age: 21 Year
  Sex: Male
  Weight: 88.4514 kg

DRUGS (2)
  1. CRESTOR [Suspect]
     Indication: BLOOD CHOLESTEROL INCREASED
     Dosage: 10 MG PO
     Route: 048
  2. ADVIL [Concomitant]

REACTIONS (4)
  - COUGH [None]
  - HAEMOPTYSIS [None]
  - MYALGIA [None]
  - PYREXIA [None]
